FAERS Safety Report 17727309 (Version 4)
Quarter: 2020Q3

REPORT INFORMATION
  Report Type: Report from Study
  Country: US (occurrence: US)
  Receive Date: 20200430
  Receipt Date: 20200807
  Transmission Date: 20201102
  Serious: No
  Sender: FDA-Public Use
  Company Number: NVSC2020US117030

PATIENT
  Sex: Female

DRUGS (1)
  1. MAYZENT [Suspect]
     Active Substance: SIPONIMOD
     Indication: PRODUCT USED FOR UNKNOWN INDICATION
     Dosage: 2 MG
     Route: 065

REACTIONS (5)
  - Asthenia [Unknown]
  - Vision blurred [Unknown]
  - Dacryostenosis acquired [Unknown]
  - Gait disturbance [Unknown]
  - Hepatic enzyme increased [Unknown]
